FAERS Safety Report 8129376-9 (Version None)
Quarter: 2012Q1

REPORT INFORMATION
  Report Type: 
  Country: None (occurrence: None)
  Receive Date: 20120210
  Receipt Date: 20120130
  Transmission Date: 20120608
  Serious: Yes (Other)
  Sender: FDA-Public Use
  Company Number: IL-NAPPMUNDI-GBR-2012-0009685

PATIENT

DRUGS (11)
  1. GLUCOMIN [Concomitant]
  2. BUTRANS [Suspect]
     Dosage: 10 MCG, Q1H
     Route: 062
  3. AEROVENT [Concomitant]
  4. ASPIRIN [Concomitant]
  5. ACTEMRA [Concomitant]
  6. VENTOLIN [Concomitant]
  7. LOSEC                              /00661201/ [Concomitant]
  8. BUTRANS [Suspect]
     Indication: PAIN
     Dosage: 20 MCG, Q1H
     Route: 062
  9. CARDILOC [Concomitant]
  10. PREDNISONE [Concomitant]
  11. PLAQUENIL [Concomitant]

REACTIONS (4)
  - MALAISE [None]
  - DYSPNOEA [None]
  - CARDIAC FAILURE [None]
  - CHRONIC OBSTRUCTIVE PULMONARY DISEASE [None]
